FAERS Safety Report 22306384 (Version 2)
Quarter: 2024Q1

REPORT INFORMATION
  Report Type: Spontaneous
  Country: PT (occurrence: PT)
  Receive Date: 20230511
  Receipt Date: 20240219
  Transmission Date: 20240410
  Serious: Yes (Disabling)
  Sender: FDA-Public Use
  Company Number: PT-SA-SAC20230505000967

PATIENT
  Age: 55 Year
  Sex: Female

DRUGS (7)
  1. DUPIXENT [Suspect]
     Active Substance: DUPILUMAB
     Indication: Chronic rhinosinusitis with nasal polyps
     Dosage: UNK
     Route: 058
     Dates: start: 202302, end: 2023
  2. DUPIXENT [Suspect]
     Active Substance: DUPILUMAB
     Indication: Asthma
  3. EUTHYROX [Concomitant]
     Active Substance: LEVOTHYROXINE SODIUM
     Indication: Autoimmune thyroiditis
     Dosage: UNK
  4. MONTELUKAST [Concomitant]
     Active Substance: MONTELUKAST SODIUM
     Indication: Asthma
     Dosage: 10 MG, QD
  5. FLUTICASONE FUROATE\VILANTEROL TRIFENATATE [Concomitant]
     Active Substance: FLUTICASONE FUROATE\VILANTEROL TRIFENATATE
     Indication: Asthma
     Dosage: UNK UNK, QD
  6. BILASTINE [Concomitant]
     Active Substance: BILASTINE
     Indication: Chronic rhinosinusitis with nasal polyps
     Dosage: 20 MG, QD
  7. SPIRIVA [Concomitant]
     Active Substance: TIOTROPIUM BROMIDE MONOHYDRATE
     Indication: Asthma
     Dosage: UNK UNK, QD

REACTIONS (4)
  - Tendon disorder [Recovering/Resolving]
  - Tenderness [Recovering/Resolving]
  - Tendon pain [Recovering/Resolving]
  - Swelling [Recovering/Resolving]

NARRATIVE: CASE EVENT DATE: 20230222
